FAERS Safety Report 7000025 (Version 13)
Quarter: 2012Q4

REPORT INFORMATION
  Report Type: 
  Country: CA (occurrence: CA)
  Receive Date: 20090521
  Receipt Date: 20121106
  Transmission Date: 20130627
  Serious: Yes (Hospitalization, Other)
  Sender: FDA-Public Use
  Company Number: PHHY2009CA13972

PATIENT
  Sex: Female

DRUGS (3)
  1. SANDOSTATIN LAR [Suspect]
     Indication: COLON CANCER
     Dosage: 20 mg, QMO
     Route: 030
     Dates: start: 20061208
  2. SANDOSTATIN LAR [Suspect]
     Dosage: 20 mg, every 20 days
     Route: 030
  3. ADALAT [Concomitant]

REACTIONS (25)
  - Renal failure [Unknown]
  - Angina pectoris [Unknown]
  - Gout [Recovering/Resolving]
  - Musculoskeletal pain [Unknown]
  - Clostridium difficile infection [Unknown]
  - Condition aggravated [Recovering/Resolving]
  - Arthralgia [Recovering/Resolving]
  - Urinary tract infection [Unknown]
  - Vaginal infection [Unknown]
  - Vaginal haemorrhage [Recovered/Resolved]
  - Blood pressure systolic increased [Unknown]
  - Haemorrhoids [Unknown]
  - Rectal haemorrhage [Recovered/Resolved]
  - General physical health deterioration [Unknown]
  - Diarrhoea [Unknown]
  - Arrhythmia [Recovering/Resolving]
  - Oedema peripheral [Unknown]
  - Erythema [Recovering/Resolving]
  - Joint swelling [Unknown]
  - Back pain [Unknown]
  - Pain in extremity [Unknown]
  - Myalgia [Unknown]
  - Pain [Unknown]
  - Asthenia [Unknown]
  - Fatigue [Unknown]
